FAERS Safety Report 23070419 (Version 1)
Quarter: 2023Q4

REPORT INFORMATION
  Report Type: Spontaneous
  Country: US (occurrence: US)
  Receive Date: 20231016
  Receipt Date: 20231016
  Transmission Date: 20240110
  Serious: Yes (Other)
  Sender: FDA-Public Use
  Company Number: US-PFIZER INC-202300323567

PATIENT
  Age: 76 Year
  Sex: Female

DRUGS (1)
  1. XELJANZ XR [Suspect]
     Active Substance: TOFACITINIB CITRATE
     Dosage: 11 MG, 1X/DAY
     Route: 048

REACTIONS (6)
  - Rheumatoid arthritis [Unknown]
  - Nerve injury [Unknown]
  - Herpes zoster [Unknown]
  - Dry eye [Unknown]
  - Dry mouth [Unknown]
  - Arthropathy [Unknown]

NARRATIVE: CASE EVENT DATE: 20221101
